FAERS Safety Report 22627950 (Version 4)
Quarter: 2023Q4

REPORT INFORMATION
  Report Type: Report from Study
  Country: US (occurrence: US)
  Receive Date: 20230622
  Receipt Date: 20231003
  Transmission Date: 20240109
  Serious: Yes (Other)
  Sender: FDA-Public Use
  Company Number: US-ABBVIE-5299859

PATIENT
  Age: 63 Year
  Sex: Female
  Weight: 84 kg

DRUGS (2)
  1. RINVOQ [Suspect]
     Active Substance: UPADACITINIB
     Indication: Rheumatoid arthritis
     Dosage: FORM STRENGTH: 15 MILLIGRAM
     Route: 048
     Dates: start: 202112, end: 202201
  2. TRAMADOL [Concomitant]
     Active Substance: TRAMADOL\TRAMADOL HYDROCHLORIDE
     Indication: Pain
     Dosage: TIME INTERVAL: 0.33333333 DAYS: 50
     Route: 048

REACTIONS (6)
  - Intervertebral disc protrusion [Recovering/Resolving]
  - Gait disturbance [Unknown]
  - Herpes zoster [Unknown]
  - Upper respiratory tract infection [Unknown]
  - Intervertebral disc protrusion [Unknown]
  - Hypoaesthesia [Recovering/Resolving]

NARRATIVE: CASE EVENT DATE: 20230301
